FAERS Safety Report 8339282-2 (Version None)
Quarter: 2012Q2

REPORT INFORMATION
  Report Type: 
  Country: None (occurrence: None)
  Receive Date: 20120502
  Receipt Date: 20120418
  Transmission Date: 20120825
  Serious: Yes (Life-Threatening, Hospitalization)
  Sender: FDA-Public Use
  Company Number: VAL_00753_2012

PATIENT
  Sex: Female
  Weight: 40 kg

DRUGS (19)
  1. NIZATIDINE [Concomitant]
  2. CARNACULIN /00088101/ [Concomitant]
  3. NASONEX [Concomitant]
  4. LEVOTHYROXINE SODIUM [Concomitant]
  5. FOSRENOL [Concomitant]
  6. HEPARIN [Concomitant]
  7. OLMESARTAN MEDOXOMIL [Concomitant]
  8. CELECTOL [Concomitant]
  9. NESPO [Concomitant]
  10. NORVASC [Concomitant]
  11. SHAKUYAKUKANZOTO [Concomitant]
  12. CELEBREX [Concomitant]
  13. ROCALTROL [Suspect]
     Indication: RENAL FAILURE CHRONIC
     Dosage: 0.25 ?G 3X/WEEK, ADMINISTERED ON MONDAY, WEDNESDAY AND FRIDAY FOR HEMODIALYSIS ORAL
     Route: 048
     Dates: start: 20120227, end: 20120319
  14. CLIVARINE [Concomitant]
  15. CALCIUM CARBONATE [Concomitant]
  16. RISUMIC [Concomitant]
  17. PEMIROLAST POTASSIUM [Concomitant]
  18. EASTEL [Concomitant]
  19. BENZALIN /00036201/ [Concomitant]

REACTIONS (5)
  - UNEVALUABLE EVENT [None]
  - BASOPHIL COUNT INCREASED [None]
  - HYPEREOSINOPHILIC SYNDROME [None]
  - APHAGIA [None]
  - CARDIAC FAILURE [None]
